FAERS Safety Report 7474586-7 (Version None)
Quarter: 2011Q2

REPORT INFORMATION
  Report Type: 
  Country: None (occurrence: None)
  Receive Date: 20110503
  Receipt Date: 20110419
  Transmission Date: 20111010
  Serious: Yes (Other)
  Sender: FDA-Public Use
  Company Number: 031382

PATIENT
  Sex: Female

DRUGS (1)
  1. CIMZIA [Suspect]
     Indication: RHEUMATOID ARTHRITIS
     Dosage: (400 MG, 2 INJECTIONS OF 200 MG ONE SINGLE DAY SUBCUTANEOUS)SS

REACTIONS (2)
  - OEDEMA [None]
  - DRUG HYPERSENSITIVITY [None]
